FAERS Safety Report 25427629 (Version 2)
Quarter: 2025Q3

REPORT INFORMATION
  Report Type: Report from Study
  Country: US (occurrence: US)
  Receive Date: 20250612
  Receipt Date: 20250807
  Transmission Date: 20251020
  Serious: Yes (Other)
  Sender: EMD SERONO INC
  Company Number: US-Merck Healthcare KGaA-2024024952

PATIENT
  Age: 68 Year
  Sex: Male

DRUGS (1)
  1. MAVENCLAD [Suspect]
     Active Substance: CLADRIBINE
     Indication: Multiple sclerosis
     Dates: start: 20240503, end: 20240507

REACTIONS (12)
  - Anaemia [Recovered/Resolved]
  - Laboratory test abnormal [Unknown]
  - pH urine decreased [Unknown]
  - Oesophageal disorder [Unknown]
  - Depressed mood [Unknown]
  - Photopsia [Unknown]
  - Anxiety [Not Recovered/Not Resolved]
  - Vertigo [Unknown]
  - Pain [Unknown]
  - Fatigue [Unknown]
  - Abdominal discomfort [Recovered/Resolved]
  - Muscular weakness [Unknown]

NARRATIVE: CASE EVENT DATE: 20240505
